FAERS Safety Report 12221583 (Version 1)
Quarter: 2016Q1

REPORT INFORMATION
  Report Type: Spontaneous
  Country: US (occurrence: None)
  Receive Date: 20160329
  Receipt Date: 20160329
  Transmission Date: 20160526
  Serious: Yes (Life-Threatening, Hospitalization, Disabling)
  Sender: FDA-Public Use
  Company Number: None

PATIENT

DRUGS (4)
  1. GABAPENTIN CAPSULE [Suspect]
     Active Substance: GABAPENTIN
     Indication: NEURALGIA
     Dosage: 1 PILL 3 TIMES DAILY MOUTH
     Route: 048
     Dates: end: 20160322
  2. AMBIEN [Concomitant]
     Active Substance: ZOLPIDEM TARTRATE
  3. MELATONIN [Concomitant]
     Active Substance: MELATONIN
  4. CYMBALTA [Concomitant]
     Active Substance: DULOXETINE HYDROCHLORIDE

REACTIONS (7)
  - Depression [None]
  - Asthenia [None]
  - Decreased appetite [None]
  - Amnesia [None]
  - Anxiety [None]
  - Insomnia [None]
  - Gun shot wound [None]

NARRATIVE: CASE EVENT DATE: 20140714
